FAERS Safety Report 17250240 (Version 3)
Quarter: 2020Q2

REPORT INFORMATION
  Report Type: Report from Study
  Country: None (occurrence: US)
  Receive Date: 20200109
  Receipt Date: 20200401
  Transmission Date: 20200713
  Serious: Yes (Hospitalization, Other)
  Sender: FDA-Public Use
  Company Number: US-ABBVIE-20K-163-3225194-00

PATIENT
  Age: 64 Year
  Sex: Female

DRUGS (1)
  1. HUMIRA [Suspect]
     Active Substance: ADALIMUMAB
     Indication: RHEUMATOID ARTHRITIS
     Dosage: CITRATE FREE
     Route: 058

REACTIONS (9)
  - Arthritis [Recovering/Resolving]
  - Diverticulum [Recovered/Resolved]
  - Sepsis [Unknown]
  - Large intestinal ulcer [Recovering/Resolving]
  - Cholelithiasis [Unknown]
  - Meniscus injury [Recovered/Resolved]
  - Diverticulitis [Unknown]
  - Rectal haemorrhage [Unknown]
  - Colitis ulcerative [Unknown]

NARRATIVE: CASE EVENT DATE: 202002
